FAERS Safety Report 4580941-5 (Version None)
Quarter: 2005Q1

REPORT INFORMATION
  Report Type: 
  Country: None (occurrence: None)
  Receive Date: 20050214
  Receipt Date: 20040630
  Transmission Date: 20050727
  Serious: No
  Sender: FDA-Public Use
  Company Number: US-GLAXOSMITHKLINE-A0516606A

PATIENT
  Age: 56 Year
  Sex: Female

DRUGS (5)
  1. LAMICTAL [Suspect]
     Indication: DEPRESSION
     Dosage: 25MG PER DAY
     Route: 048
     Dates: start: 20040628, end: 20040630
  2. SINEMET [Concomitant]
  3. KLONOPIN [Concomitant]
  4. AMBIEN [Concomitant]
  5. NEURONTIN [Concomitant]

REACTIONS (1)
  - RASH [None]
